FAERS Safety Report 9316732 (Version 1)
Quarter: 2013Q2

REPORT INFORMATION
  Report Type: Spontaneous
  Country: GR (occurrence: None)
  Receive Date: 20130523
  Receipt Date: 20130523
  Transmission Date: 20140414
  Serious: Yes (Other)
  Sender: FDA-Public Use
  Company Number: SYM-2013-03963

PATIENT
  Age: 73 Year
  Sex: Male

DRUGS (4)
  1. TILDIEM [Suspect]
     Indication: ISCHAEMIA
     Route: 048
     Dates: start: 2006, end: 20130404
  2. INSULIN LENTE (INSULIN ZINC SUSPENSION) (INSULIN ZINC SUSPENSION) [Concomitant]
  3. INSULIN (INSULIN) (INSULIN) [Concomitant]
  4. ATACAND (CANDESARTAN CILEXETIL0 (CANDESARTAN CILEXETIL) [Concomitant]

REACTIONS (2)
  - Heart rate abnormal [None]
  - Left ventricular dysfunction [None]
